FAERS Safety Report 6033781-4 (Version None)
Quarter: 2009Q1

REPORT INFORMATION
  Report Type: 
  Country: None (occurrence: None)
  Receive Date: 20090112
  Receipt Date: 20090105
  Transmission Date: 20090719
  Serious: Yes (Other)
  Sender: FDA-Public Use
  Company Number: ES-RANBAXY-2009RR-20306

PATIENT
  Age: 70 Year
  Sex: Male

DRUGS (1)
  1. OFLOXACIN [Suspect]
     Indication: HAEMATURIA
     Dosage: 400 MG, BID
     Route: 048
     Dates: start: 20081103

REACTIONS (5)
  - ANAPHYLACTIC REACTION [None]
  - DYSPHONIA [None]
  - HYPERHIDROSIS [None]
  - RALES [None]
  - STRIDOR [None]
